FAERS Safety Report 25984470 (Version 1)
Quarter: 2025Q4

REPORT INFORMATION
  Report Type: Spontaneous
  Country: US (occurrence: None)
  Receive Date: 20251031
  Receipt Date: 20251031
  Transmission Date: 20260117
  Serious: Yes (Hospitalization)
  Sender: FDA-CTU
  Company Number: None

PATIENT
  Sex: Male

DRUGS (1)
  1. SKYRIZI [Suspect]
     Active Substance: RISANKIZUMAB-RZAA
     Indication: Crohn^s disease
     Dosage: 360 MG EVERY 4 WEEKS SUBCUTANEOUS?
     Route: 058
     Dates: start: 20240619

REACTIONS (2)
  - Pancreatitis [None]
  - Pancreatolithiasis [None]
